FAERS Safety Report 6135884-2 (Version None)
Quarter: 2009Q1

REPORT INFORMATION
  Report Type: 
  Country: None (occurrence: None)
  Receive Date: 20090327
  Receipt Date: 20090318
  Transmission Date: 20090719
  Serious: Yes (Disabling, Other)
  Sender: FDA-Public Use
  Company Number: US-MERCK-0810USA00410

PATIENT
  Age: 62 Year
  Sex: Female
  Weight: 61 kg

DRUGS (4)
  1. FOSAMAX [Suspect]
     Indication: OSTEOPOROSIS
     Route: 048
     Dates: start: 20010406, end: 20020401
  2. FOSAMAX [Suspect]
     Route: 048
     Dates: start: 20020401, end: 20060914
  3. CELEBREX [Concomitant]
     Indication: OSTEOARTHRITIS
     Route: 065
  4. DIOVAN [Concomitant]
     Indication: HYPERTENSION
     Route: 065

REACTIONS (21)
  - ABSCESS [None]
  - BONE DISORDER [None]
  - CHRONIC OBSTRUCTIVE PULMONARY DISEASE [None]
  - DEEP VEIN THROMBOSIS [None]
  - DIZZINESS [None]
  - EMOTIONAL DISTRESS [None]
  - FATIGUE [None]
  - GASTROOESOPHAGEAL REFLUX DISEASE [None]
  - HEADACHE [None]
  - HIATUS HERNIA [None]
  - HYPOAESTHESIA ORAL [None]
  - IMPAIRED HEALING [None]
  - JAW DISORDER [None]
  - NEUROPATHY PERIPHERAL [None]
  - ORAL CAVITY FISTULA [None]
  - OSTEOMYELITIS [None]
  - OSTEONECROSIS [None]
  - OTITIS MEDIA [None]
  - PLANTAR FASCIITIS [None]
  - STOMATITIS [None]
  - WEIGHT INCREASED [None]
